FAERS Safety Report 6936830-1 (Version None)
Quarter: 2010Q3

REPORT INFORMATION
  Report Type: 
  Country: None (occurrence: None)
  Receive Date: 20100818
  Receipt Date: 20100811
  Transmission Date: 20110219
  Serious: Yes (Death, Hospitalization)
  Sender: FDA-Public Use
  Company Number: 2010SP001418

PATIENT
  Age: 62 Year
  Sex: Male
  Weight: 62 kg

DRUGS (9)
  1. ARFORMOTEROL [Suspect]
     Indication: CHRONIC OBSTRUCTIVE PULMONARY DISEASE
     Dosage: 15 UG; BID; INHALATION
     Route: 055
     Dates: start: 20100126, end: 20100510
  2. SPIRIVA [Concomitant]
  3. ALBUTEROL [Concomitant]
  4. QVAR 40 [Concomitant]
  5. SYNTHROID [Concomitant]
  6. OMEPRAZOLE [Concomitant]
  7. SIMVASTATIN [Concomitant]
  8. METOPROLOL TARTRATE [Concomitant]
  9. WELLBUTRIN [Concomitant]

REACTIONS (11)
  - CEREBRAL ISCHAEMIA [None]
  - CHRONIC OBSTRUCTIVE PULMONARY DISEASE [None]
  - CONDITION AGGRAVATED [None]
  - COUGH [None]
  - DYSPNOEA [None]
  - EMPHYSEMA [None]
  - INCREASED UPPER AIRWAY SECRETION [None]
  - LUNG NEOPLASM [None]
  - OESOPHAGEAL CARCINOMA [None]
  - OESOPHAGITIS [None]
  - PYREXIA [None]
